FAERS Safety Report 8472888-9 (Version None)
Quarter: 2012Q2

REPORT INFORMATION
  Report Type: 
  Country: None (occurrence: None)
  Receive Date: 20120622
  Receipt Date: 20120622
  Transmission Date: 20120825
  Serious: Yes (Death)
  Sender: FDA-Public Use
  Company Number: None

PATIENT
  Sex: Male
  Weight: 81 kg

DRUGS (2)
  1. PRADAXA [Suspect]
     Indication: PULMONARY EMBOLISM
     Dosage: PO
     Route: 048
     Dates: start: 20120601, end: 20120601
  2. PRADAXA [Suspect]
     Indication: DEEP VEIN THROMBOSIS
     Dosage: PO
     Route: 048
     Dates: start: 20120601, end: 20120601

REACTIONS (5)
  - CARDIAC TAMPONADE [None]
  - AORTIC DISSECTION [None]
  - CHEST PAIN [None]
  - HYPOTENSION [None]
  - PERICARDIAL EFFUSION [None]
